FAERS Safety Report 24561158 (Version 1)
Quarter: 2024Q4

REPORT INFORMATION
  Report Type: Spontaneous
  Country: US (occurrence: None)
  Receive Date: 20241028
  Receipt Date: 20241028
  Transmission Date: 20250115
  Serious: Yes (Hospitalization)
  Sender: Public
  Company Number: None

PATIENT
  Age: 74 Year
  Sex: Male

DRUGS (2)
  1. TRAMADOL HYDROCHLORIDE [Suspect]
     Active Substance: TRAMADOL HYDROCHLORIDE
     Dates: start: 20240710, end: 20240710
  2. HYDROXYZINE HYDROCHLORIDE [Suspect]
     Active Substance: HYDROXYZINE HYDROCHLORIDE
     Dates: start: 20240710, end: 20240710

REACTIONS (6)
  - Confusional state [None]
  - Overdose [None]
  - Acute kidney injury [None]
  - Seizure [None]
  - Urinary retention [None]
  - Dysuria [None]

NARRATIVE: CASE EVENT DATE: 20240710
